FAERS Safety Report 7289205-2 (Version None)
Quarter: 2011Q1

REPORT INFORMATION
  Report Type: 
  Country: None (occurrence: None)
  Receive Date: 20110211
  Receipt Date: 20110202
  Transmission Date: 20110831
  Serious: Yes (Hospitalization, Other)
  Sender: FDA-Public Use
  Company Number: US-ELI_LILLY_AND_COMPANY-US201102001220

PATIENT
  Sex: Male

DRUGS (2)
  1. LANTUS [Concomitant]
  2. HUMALOG [Suspect]
     Indication: TYPE 1 DIABETES MELLITUS
     Dosage: UNK, AS NEEDED

REACTIONS (7)
  - INCORRECT STORAGE OF DRUG [None]
  - PAIN [None]
  - FALL [None]
  - LIGAMENT RUPTURE [None]
  - DRUG INEFFECTIVE [None]
  - ANKLE FRACTURE [None]
  - BLOOD GLUCOSE INCREASED [None]
